FAERS Safety Report 18259483 (Version 3)
Quarter: 2020Q4

REPORT INFORMATION
  Report Type: Report from Study
  Country: US (occurrence: US)
  Receive Date: 20200911
  Receipt Date: 20201012
  Transmission Date: 20210113
  Serious: No
  Sender: FDA-Public Use
  Company Number: NVSC2020US249119

PATIENT
  Sex: Male

DRUGS (1)
  1. COSENTYX [Suspect]
     Active Substance: SECUKINUMAB
     Indication: PSORIASIS
     Dosage: 300 MG, QW (ONCE WEEKLY FOR 5 WEEKS, THEN ONCE)(BENEATH THE SKIN,USUALLY VIA INJECTION)
     Route: 058
     Dates: start: 20200630, end: 20201007

REACTIONS (2)
  - Psoriasis [Unknown]
  - Drug ineffective [Unknown]
